FAERS Safety Report 10412763 (Version 6)
Quarter: 2015Q1

REPORT INFORMATION
  Report Type: Spontaneous
  Country: JP (occurrence: JP)
  Receive Date: 20140827
  Receipt Date: 20150319
  Transmission Date: 20150720
  Serious: Yes (Hospitalization, Disabling)
  Sender: FDA-Public Use
  Company Number: JP-JNJFOC-20140823172

PATIENT
  Age: 29 Year
  Sex: Male

DRUGS (7)
  1. KEPPRA [Concomitant]
     Active Substance: LEVETIRACETAM
     Route: 048
     Dates: start: 20130217
  2. TEGRETOL [Concomitant]
     Active Substance: CARBAMAZEPINE
     Route: 048
  3. STEROIDS NOS [Suspect]
     Active Substance: UNSPECIFIED INGREDIENT
     Indication: PRODUCT USED FOR UNKNOWN INDICATION
     Route: 065
     Dates: start: 20131108, end: 20131110
  4. REMICADE [Suspect]
     Active Substance: INFLIXIMAB
     Indication: CROHN^S DISEASE
     Route: 042
  5. TEGRETOL [Concomitant]
     Active Substance: CARBAMAZEPINE
     Route: 048
  6. RIVOTRIL [Concomitant]
     Active Substance: CLONAZEPAM
     Route: 048
     Dates: start: 20130220
  7. KEPPRA [Concomitant]
     Active Substance: LEVETIRACETAM
     Route: 048

REACTIONS (2)
  - Encephalitis viral [Recovered/Resolved with Sequelae]
  - Alice in wonderland syndrome [Not Recovered/Not Resolved]

NARRATIVE: CASE EVENT DATE: 201302
